FAERS Safety Report 25923495 (Version 3)
Quarter: 2025Q4

REPORT INFORMATION
  Report Type: Spontaneous
  Country: US (occurrence: US)
  Receive Date: 20251015
  Receipt Date: 20251028
  Transmission Date: 20260118
  Serious: Yes (Other)
  Sender: AMGEN
  Company Number: US-AMGEN-USASP2025200956

PATIENT
  Sex: Female

DRUGS (4)
  1. EVENITY [Suspect]
     Active Substance: ROMOSOZUMAB-AQQG
     Indication: Product used for unknown indication
     Dosage: UNK UNK, QMO
     Route: 065
  2. PREDNISONE [Suspect]
     Active Substance: PREDNISONE
     Indication: Pneumonitis
     Dosage: UNK
     Route: 065
  3. CALCIUM [Concomitant]
     Active Substance: CALCIUM
     Dosage: 1500 MILLIGRAM
  4. VITAMIN D3 [Concomitant]
     Active Substance: CHOLECALCIFEROL
     Dosage: 2000 IU^S

REACTIONS (17)
  - Pneumonitis [Unknown]
  - Depression [Unknown]
  - Suicidal ideation [Unknown]
  - Musculoskeletal discomfort [Unknown]
  - Fear of death [Unknown]
  - Blood calcium decreased [Unknown]
  - Vitamin D deficiency [Unknown]
  - Gastrointestinal disorder [Unknown]
  - Limb discomfort [Unknown]
  - Jaw clicking [Unknown]
  - Asthenia [Unknown]
  - Gait disturbance [Unknown]
  - Lethargy [Not Recovered/Not Resolved]
  - Product communication issue [Unknown]
  - Bone pain [Unknown]
  - Infection [Unknown]
  - Impaired healing [Unknown]
